APPROVED DRUG PRODUCT: MALARONE
Active Ingredient: ATOVAQUONE; PROGUANIL HYDROCHLORIDE
Strength: 250MG;100MG
Dosage Form/Route: TABLET;ORAL
Application: N021078 | Product #001 | TE Code: AB
Applicant: GLAXOSMITHKLINE
Approved: Jul 14, 2000 | RLD: Yes | RS: Yes | Type: RX